FAERS Safety Report 10428297 (Version 1)
Quarter: 2014Q3

REPORT INFORMATION
  Report Type: Spontaneous
  Country: GB (occurrence: GB)
  Receive Date: 20140903
  Receipt Date: 20140903
  Transmission Date: 20150326
  Serious: Yes (Disabling)
  Sender: FDA-Public Use
  Company Number: GB-ABBVIE-14P-167-1279368-00

PATIENT
  Age: 28 Year
  Sex: Female
  Weight: 55 kg

DRUGS (6)
  1. COCODAMOL [Concomitant]
     Active Substance: ACETAMINOPHEN\CODEINE PHOSPHATE
     Indication: PRODUCT USED FOR UNKNOWN INDICATION
  2. ANUSOL [Concomitant]
     Indication: PRODUCT USED FOR UNKNOWN INDICATION
  3. FYBOGEL [Concomitant]
     Active Substance: PLANTAGO OVATA SEED
     Indication: PRODUCT USED FOR UNKNOWN INDICATION
  4. NAPROXEN. [Concomitant]
     Active Substance: NAPROXEN
     Indication: PRODUCT USED FOR UNKNOWN INDICATION
  5. LUPRON DEPOT [Suspect]
     Active Substance: LEUPROLIDE ACETATE
     Indication: ENDOMETRIOSIS
     Route: 030
     Dates: start: 20140709
  6. TIBOLONE [Concomitant]
     Active Substance: TIBOLONE
     Indication: PRODUCT USED FOR UNKNOWN INDICATION
     Dates: start: 20140709

REACTIONS (3)
  - C-reactive protein increased [Recovering/Resolving]
  - Monarthritis [Recovering/Resolving]
  - Red blood cell sedimentation rate increased [Recovering/Resolving]

NARRATIVE: CASE EVENT DATE: 20140714
